FAERS Safety Report 21408398 (Version 1)
Quarter: 2022Q4

REPORT INFORMATION
  Report Type: Report from Study
  Country: CA (occurrence: CA)
  Receive Date: 20221004
  Receipt Date: 20221004
  Transmission Date: 20230113
  Serious: Yes (Other)
  Sender: FDA-Public Use
  Company Number: CA-ABBVIE-4134693

PATIENT
  Sex: Male

DRUGS (1)
  1. HUMIRA [Suspect]
     Active Substance: ADALIMUMAB
     Indication: Crohn^s disease
     Route: 058
     Dates: start: 20190814

REACTIONS (8)
  - Gastric ulcer haemorrhage [Unknown]
  - Abscess [Unknown]
  - Abdominal distension [Unknown]
  - Fistula [Unknown]
  - Constipation [Unknown]
  - Diverticulitis [Unknown]
  - Abdominal pain [Unknown]
  - Nephrolithiasis [Unknown]
